FAERS Safety Report 8511773-0 (Version None)
Quarter: 2012Q3

REPORT INFORMATION
  Report Type: 
  Country: None (occurrence: None)
  Receive Date: 20120716
  Receipt Date: 20120710
  Transmission Date: 20120928
  Serious: Yes (Other)
  Sender: FDA-Public Use
  Company Number: PHEH2012US013523

PATIENT
  Sex: Male

DRUGS (9)
  1. VITAMIN D [Concomitant]
     Indication: BONE DISORDER
     Dosage: 2000 U, UNK
     Route: 048
  2. PERCOCET [Concomitant]
     Indication: PAIN
     Dosage: 7.5 MG, PRN
  3. GABAPENTIN [Concomitant]
     Indication: ANTIINFLAMMATORY THERAPY
     Dosage: 300 MG, QID
     Route: 048
  4. NOVOLOG [Concomitant]
     Indication: DIABETES MELLITUS
     Dosage: 4 U, UNK
  5. SIMVASTATIN [Concomitant]
     Indication: BLOOD CHOLESTEROL
     Dosage: 40 MG, UNK
     Route: 048
  6. LANSOPRAZOLE [Concomitant]
     Indication: GASTROOESOPHAGEAL REFLUX DISEASE
     Dosage: 30 MG, UNK
     Route: 048
  7. DIOVAN [Suspect]
     Indication: HYPERTENSION
     Dosage: 80 MG, UNK
     Route: 048
  8. HYDROCHLOROTHIAZIDE [Concomitant]
     Indication: BLOOD PRESSURE
     Dosage: 25 MG, UNK
     Route: 048
  9. LANTUS [Concomitant]
     Indication: DIABETES MELLITUS
     Dosage: 12 U, UNK

REACTIONS (3)
  - DIABETIC NEUROPATHY [None]
  - BLOOD GLUCOSE FLUCTUATION [None]
  - ARTHRITIS [None]
